FAERS Safety Report 14978138 (Version 8)
Quarter: 2019Q1

REPORT INFORMATION
  Report Type: Report from Study
  Country: FR (occurrence: FR)
  Receive Date: 20180606
  Receipt Date: 20190117
  Transmission Date: 20190417
  Serious: Yes (Death, Other)
  Sender: FDA-Public Use
  Company Number: FR-ROCHE-2133246

PATIENT
  Age: 80 Year
  Sex: Male
  Weight: 68 kg

DRUGS (7)
  1. VINCRISTINE [Suspect]
     Active Substance: VINCRISTINE
     Indication: MANTLE CELL LYMPHOMA
     Dosage: LAST CYCLE ON 28/JUN/2016
     Route: 065
     Dates: start: 20160202
  2. CYCLOPHOSPHAMIDE. [Suspect]
     Active Substance: CYCLOPHOSPHAMIDE
     Indication: MANTLE CELL LYMPHOMA
     Dosage: LAST CYCLE ON 28/JUN/2016
     Route: 065
     Dates: start: 20160202
  3. RITUXIMAB. [Suspect]
     Active Substance: RITUXIMAB
     Indication: MANTLE CELL LYMPHOMA
     Dosage: LAST CYCLE ON 28/JUN/2016
     Route: 042
     Dates: start: 20160202
  4. RITUXIMAB. [Suspect]
     Active Substance: RITUXIMAB
     Indication: MANTLE CELL LYMPHOMA
     Dosage: LAST ADMINISTRATION DATE BEFORE EVENT: 22/MAY/2018
     Route: 058
     Dates: start: 20160920
  5. DOXORUBICIN [Suspect]
     Active Substance: DOXORUBICIN
     Indication: MANTLE CELL LYMPHOMA
     Dosage: LAST CYCLE ON 28/JUN/2016
     Route: 065
     Dates: start: 20160202
  6. PREDNISONE. [Suspect]
     Active Substance: PREDNISONE
     Indication: MANTLE CELL LYMPHOMA
     Dosage: LAST CYCLE ON 28/JUN/2016
     Route: 065
     Dates: start: 20160202
  7. LENALIDOMIDE [Suspect]
     Active Substance: LENALIDOMIDE
     Indication: MANTLE CELL LYMPHOMA
     Dosage: LAST ADMINISTRATION DATE BEFORE EVENT: 03/APR/2018?DAILY DOSE BEFORE EVENT: 10MG
     Route: 065
     Dates: start: 20160920

REACTIONS (3)
  - Actinic keratosis [Fatal]
  - Squamous cell carcinoma [Recovered/Resolved]
  - Basal cell carcinoma [Recovered/Resolved]

NARRATIVE: CASE EVENT DATE: 20180529
